FAERS Safety Report 8618015-6 (Version None)
Quarter: 2012Q3

REPORT INFORMATION
  Report Type: 
  Country: None (occurrence: None)
  Receive Date: 20120824
  Receipt Date: 20120131
  Transmission Date: 20120928
  Serious: No
  Sender: FDA-Public Use
  Company Number: US-ASTRAZENECA-2012SE06581

PATIENT
  Age: 83 Year
  Sex: Male

DRUGS (5)
  1. SYMBICORT [Suspect]
     Indication: RESPIRATORY DISORDER
     Dosage: 160-4.5 MCG, EVERY DAY
     Route: 055
     Dates: start: 20111101
  2. SYMBICORT [Suspect]
     Dosage: ONE PUFF OR TWO PUFFS BID  PRN
     Route: 055
  3. CELEBREX [Concomitant]
     Indication: PAIN
  4. DETROL [Concomitant]
     Indication: BLADDER DISORDER
  5. HYDROCODONE BITARTRATE [Concomitant]
     Indication: PAIN

REACTIONS (2)
  - HYPERTENSION [None]
  - OFF LABEL USE [None]
